FAERS Safety Report 4385690-4 (Version None)
Quarter: 2004Q2

REPORT INFORMATION
  Report Type: 
  Country: None (occurrence: None)
  Receive Date: 20040628
  Receipt Date: 20030506
  Transmission Date: 20050107
  Serious: Yes (Hospitalization)
  Sender: FDA-Public Use
  Company Number: US-AMGEN-US037207

PATIENT
  Sex: Male

DRUGS (8)
  1. ENBREL [Suspect]
     Indication: RHEUMATOID ARTHRITIS
     Route: 058
     Dates: start: 20030108
  2. METHOTREXATE [Suspect]
     Route: 048
     Dates: start: 20020327
  3. ADVAIR HFA [Concomitant]
     Route: 055
  4. PREDNISONE [Concomitant]
     Dates: start: 20010828
  5. SALSALATE [Concomitant]
     Dates: start: 20010828
  6. AVANDIA [Concomitant]
     Dates: start: 20000117
  7. GLUCOPHAGE [Concomitant]
     Dates: start: 20000117, end: 20030401
  8. ZESTRIL [Concomitant]
     Dates: start: 20000117

REACTIONS (6)
  - BLOOD GLUCOSE INCREASED [None]
  - DYSPNOEA [None]
  - HYPERHIDROSIS [None]
  - NAUSEA [None]
  - PLEURAL EFFUSION [None]
  - RESTRICTIVE PULMONARY DISEASE [None]
